FAERS Safety Report 4713638-9 (Version None)
Quarter: 2005Q3

REPORT INFORMATION
  Report Type: 
  Country: None (occurrence: None)
  Receive Date: 20050712
  Receipt Date: 20050624
  Transmission Date: 20060218
  Serious: Yes (Life-Threatening, Other)
  Sender: FDA-Public Use
  Company Number: EWC050644685

PATIENT
  Age: 74 Year
  Sex: Male
  Weight: 85 kg

DRUGS (2)
  1. PERMAX [Suspect]
     Indication: PARKINSON'S DISEASE
     Dosage: 0.25 MG/3 DAY
     Dates: start: 20010101, end: 20030701
  2. PROLOPA [Concomitant]

REACTIONS (2)
  - HYDRONEPHROSIS [None]
  - RETROPERITONEAL FIBROSIS [None]
